FAERS Safety Report 13350493 (Version 2)
Quarter: 2017Q1

REPORT INFORMATION
  Report Type: Spontaneous
  Country: DE (occurrence: DE)
  Receive Date: 20170320
  Receipt Date: 20170329
  Transmission Date: 20170429
  Serious: Yes (Other)
  Sender: FDA-Public Use
  Company Number: DE-GLENMARK PHARMACEUTICALS-2017GMK026705

PATIENT

DRUGS (13)
  1. DULOXETIN GLENMARK 30 MG MAGENSAFTRESISTENTE HARTKAPSELN [Interacting]
     Active Substance: DULOXETINE HYDROCHLORIDE
     Indication: MIGRAINE WITH AURA
     Dosage: 30 MG, BID
     Route: 048
     Dates: start: 2016, end: 201610
  2. DULOXETIN GLENMARK 30 MG MAGENSAFTRESISTENTE HARTKAPSELN [Interacting]
     Active Substance: DULOXETINE HYDROCHLORIDE
     Indication: DEPRESSION
     Dosage: UNK
     Route: 065
     Dates: start: 20170309
  3. DULOXETIN GLENMARK 60 MG MAGENSAFTERISTENTE HARTKAPSELN [Interacting]
     Active Substance: DULOXETINE HYDROCHLORIDE
     Indication: DEPRESSION
     Dosage: UNK
     Route: 065
     Dates: start: 20170309
  4. CITALOPRAM HYDROBROMIDE. [Interacting]
     Active Substance: CITALOPRAM HYDROBROMIDE
     Indication: PSYCHOTIC DISORDER
     Dosage: UNK
     Route: 065
     Dates: start: 20170309
  5. GABAPENTIN. [Interacting]
     Active Substance: GABAPENTIN
     Indication: MUSCLE TWITCHING
     Dosage: 900 MG, PRN
     Route: 065
  6. TARGIN [Interacting]
     Active Substance: NALOXONE HYDROCHLORIDE\OXYCODONE HYDROCHLORIDE
     Dosage: UNK
     Route: 065
     Dates: start: 20170309
  7. TARGIN [Interacting]
     Active Substance: NALOXONE HYDROCHLORIDE\OXYCODONE HYDROCHLORIDE
     Indication: PAIN
     Dosage: 1 DURING DAY AND 1 EVENING
     Route: 065
     Dates: start: 2009
  8. AMITRIPTILINA [Interacting]
     Active Substance: AMITRIPTYLINE HYDROCHLORIDE
     Dosage: UNK, PRN
     Route: 065
     Dates: start: 201610
  9. CITALOPRAM HYDROBROMIDE. [Suspect]
     Active Substance: CITALOPRAM HYDROBROMIDE
     Indication: MIGRAINE
     Dosage: UNK
     Route: 065
     Dates: start: 2016, end: 201610
  10. CITALOPRAM HYDROBROMIDE. [Interacting]
     Active Substance: CITALOPRAM HYDROBROMIDE
     Indication: DEPRESSION
  11. AMITRIPTILINA [Interacting]
     Active Substance: AMITRIPTYLINE HYDROCHLORIDE
     Indication: SLEEP DISORDER
     Dosage: 1 IN NIGHT IN PAST
     Route: 065
     Dates: start: 201510, end: 201610
  12. DULOXETIN GLENMARK 60 MG MAGENSAFTERISTENTE HARTKAPSELN [Interacting]
     Active Substance: DULOXETINE HYDROCHLORIDE
     Indication: MIGRAINE WITH AURA
     Dosage: 60 MG, BID
     Route: 048
     Dates: start: 2016, end: 201610
  13. GABAPENTIN. [Interacting]
     Active Substance: GABAPENTIN
     Indication: PAIN IN EXTREMITY
     Dosage: 300 MG, PRN
     Route: 065

REACTIONS (20)
  - Trance [Recovered/Resolved]
  - Treatment noncompliance [Unknown]
  - Condition aggravated [Recovering/Resolving]
  - Headache [Recovered/Resolved]
  - Hyperhidrosis [Not Recovered/Not Resolved]
  - Withdrawal syndrome [Unknown]
  - Dyspnoea [Recovered/Resolved]
  - Middle insomnia [Unknown]
  - Loss of consciousness [Recovered/Resolved]
  - Cardiovascular disorder [Recovered/Resolved]
  - Back pain [Recovering/Resolving]
  - Fall [Recovered/Resolved]
  - Drug ineffective [Unknown]
  - Apathy [Recovered/Resolved]
  - Syncope [Recovered/Resolved]
  - Drug interaction [Unknown]
  - Off label use [Unknown]
  - Drug dependence [Unknown]
  - Tachycardia [Recovered/Resolved]
  - Decreased activity [Unknown]

NARRATIVE: CASE EVENT DATE: 201610
